FAERS Safety Report 25468133 (Version 1)
Quarter: 2025Q2

REPORT INFORMATION
  Report Type: Spontaneous
  Country: US (occurrence: US)
  Receive Date: 20250623
  Receipt Date: 20250623
  Transmission Date: 20250716
  Serious: Yes (Life-Threatening, Hospitalization, Other)
  Sender: CIPLA
  Company Number: US-MLMSERVICE-20250602-PI527998-00293-1

PATIENT

DRUGS (1)
  1. ALBUTEROL [Suspect]
     Active Substance: ALBUTEROL
     Indication: Asthma
     Route: 065

REACTIONS (3)
  - Myotonia [Recovering/Resolving]
  - Rhabdomyolysis [Recovering/Resolving]
  - Respiratory failure [Recovering/Resolving]
